FAERS Safety Report 5757275-6 (Version None)
Quarter: 2008Q2

REPORT INFORMATION
  Report Type: 
  Country: None (occurrence: None)
  Receive Date: 20080603
  Receipt Date: 20080522
  Transmission Date: 20081010
  Serious: Yes (Hospitalization, Other)
  Sender: FDA-Public Use
  Company Number: US-ELI_LILLY_AND_COMPANY-US200805004552

PATIENT
  Sex: Female

DRUGS (3)
  1. FORTEO [Suspect]
     Indication: OSTEOPOROSIS
     Dates: start: 20070604
  2. CALCIUM [Concomitant]
  3. LOVASTATIN [Concomitant]

REACTIONS (7)
  - BLOOD CALCIUM INCREASED [None]
  - FATIGUE [None]
  - GRANULOMA [None]
  - NAUSEA [None]
  - PRESYNCOPE [None]
  - VIRAL INFECTION [None]
  - VOMITING [None]
